FAERS Safety Report 13755807 (Version 3)
Quarter: 2018Q1

REPORT INFORMATION
  Report Type: Spontaneous
  Country: DE (occurrence: DE)
  Receive Date: 20170714
  Receipt Date: 20180302
  Transmission Date: 20180508
  Serious: Yes (Hospitalization, Other)
  Sender: FDA-Public Use
  Company Number: PHHY2017DE103376

PATIENT
  Age: 63 Year
  Sex: Male
  Weight: 106 kg

DRUGS (17)
  1. ZYLORIC [Concomitant]
     Active Substance: ALLOPURINOL
     Indication: PRODUCT USED FOR UNKNOWN INDICATION
     Dosage: 300 MG, 1 DF QD
  2. EPLERENONE. [Concomitant]
     Active Substance: EPLERENONE
     Indication: PRODUCT USED FOR UNKNOWN INDICATION
     Route: 048
  3. XIPAMIDE [Concomitant]
     Active Substance: XIPAMIDE
     Indication: PRODUCT USED FOR UNKNOWN INDICATION
     Dosage: 10 MG, 1 DF
     Route: 048
     Dates: start: 201702
  4. TORASEMIDE [Concomitant]
     Active Substance: TORSEMIDE
     Indication: PRODUCT USED FOR UNKNOWN INDICATION
     Dosage: 10 MG, 2 DF BID
     Route: 048
     Dates: start: 201702
  5. MARCUMAR [Concomitant]
     Active Substance: PHENPROCOUMON
     Indication: LEFT VENTRICULAR FAILURE
     Dosage: UNK
     Route: 065
  6. DOLANTIN [Concomitant]
     Active Substance: MEPERIDINE
     Indication: PAIN
     Dosage: UNK
     Route: 042
     Dates: start: 201702, end: 20170223
  7. ENTRESTO [Suspect]
     Active Substance: SACUBITRIL\VALSARTAN
     Indication: CARDIAC FAILURE
     Dosage: 50 MG (24/26 MG), UNK
     Route: 048
     Dates: start: 201702, end: 20170216
  8. INSPRA [Concomitant]
     Active Substance: EPLERENONE
     Indication: PRODUCT USED FOR UNKNOWN INDICATION
     Dosage: 25 MG, 1 DF QD
     Route: 065
  9. METFORMIN [Concomitant]
     Active Substance: METFORMIN HYDROCHLORIDE
     Indication: PRODUCT USED FOR UNKNOWN INDICATION
     Dosage: 500 MG, UNK
     Route: 048
  10. FENOFIBRAT - SLOW RELEASE ^CT-ARZNEIMITTEL^ [Concomitant]
     Indication: PRODUCT USED FOR UNKNOWN INDICATION
     Dosage: 250 MG, QD
     Route: 065
  11. MEROPENEM. [Concomitant]
     Active Substance: MEROPENEM
     Indication: INFLAMMATION
     Dosage: UNK
     Route: 065
     Dates: start: 201702
  12. CORDAREX [Concomitant]
     Active Substance: AMIODARONE
     Indication: PRODUCT USED FOR UNKNOWN INDICATION
     Dosage: 200 MG, 1 DF TID
     Route: 065
     Dates: start: 201702
  13. GLIMEPRID [Concomitant]
     Active Substance: GLIMEPIRIDE
     Indication: PRODUCT USED FOR UNKNOWN INDICATION
     Dosage: 4 MG, 1 DF QD
     Route: 065
  14. NOVALGIN (METAMIZOLE SODIUM) [Concomitant]
     Active Substance: METAMIZOLE SODIUM
     Indication: PAIN
     Dosage: UNK
     Route: 065
     Dates: start: 201702
  15. AMIODARONE [Concomitant]
     Active Substance: AMIODARONE
     Indication: PRODUCT USED FOR UNKNOWN INDICATION
     Route: 048
  16. GLIMEPIRIDE. [Concomitant]
     Active Substance: GLIMEPIRIDE
     Indication: PRODUCT USED FOR UNKNOWN INDICATION
     Dosage: 4 MG, UNK
     Route: 048
  17. CONCOR [Concomitant]
     Active Substance: BISOPROLOL FUMARATE
     Indication: PRODUCT USED FOR UNKNOWN INDICATION
     Dosage: 5 MG, 0.5 DF BID
     Route: 065

REACTIONS (22)
  - Pancreatitis acute [Recovered/Resolved]
  - Blood creatinine increased [Recovering/Resolving]
  - Ileus paralytic [Unknown]
  - Hepatic steatosis [Unknown]
  - Pain [Unknown]
  - Blood cholesterol increased [Unknown]
  - Amylase increased [Unknown]
  - Ejection fraction decreased [Unknown]
  - Lipase increased [Recovering/Resolving]
  - Bradycardia [Recovered/Resolved]
  - General physical health deterioration [Unknown]
  - Low density lipoprotein increased [Unknown]
  - Flatulence [Unknown]
  - Dyspnoea [Unknown]
  - High density lipoprotein increased [Unknown]
  - Hypotension [Unknown]
  - Renal failure [Unknown]
  - Cholelithiasis [Unknown]
  - Abdominal pain upper [Unknown]
  - Inflammation [Unknown]
  - Abdominal discomfort [Unknown]
  - Cold sweat [Unknown]

NARRATIVE: CASE EVENT DATE: 201702
